FAERS Safety Report 8997217 (Version 2)
Quarter: 2013Q2

REPORT INFORMATION
  Report Type: Report from Study
  Country: TR (occurrence: TR)
  Receive Date: 20130104
  Receipt Date: 20130408
  Transmission Date: 20140414
  Serious: Yes (Other)
  Sender: FDA-Public Use
  Company Number: TR-BAYER-2012-136433

PATIENT
  Age: 44 Year
  Sex: Female
  Weight: 75 kg

DRUGS (2)
  1. BETAFERON [Suspect]
     Indication: MULTIPLE SCLEROSIS
     Dosage: UNK
     Route: 058
     Dates: start: 20050407, end: 20121025
  2. SERTRALINE HYDROCHLORIDE [Concomitant]

REACTIONS (4)
  - Abasia [Recovering/Resolving]
  - Multiple sclerosis [None]
  - Muscle spasticity [Recovering/Resolving]
  - Influenza like illness [Recovering/Resolving]
